FAERS Safety Report 21731899 (Version 1)
Quarter: 2022Q4

REPORT INFORMATION
  Report Type: Report from Study
  Country: DE (occurrence: DE)
  Receive Date: 20221215
  Receipt Date: 20221215
  Transmission Date: 20230113
  Serious: Yes (Hospitalization, Other)
  Sender: FDA-Public Use
  Company Number: DE-BIOGEN-2022BI01175284

PATIENT
  Age: 47 Year
  Sex: Female
  Weight: 60 kg

DRUGS (1)
  1. TYSABRI [Suspect]
     Active Substance: NATALIZUMAB
     Indication: Multiple sclerosis
     Route: 050
     Dates: start: 20130115

REACTIONS (1)
  - Carcinoma in situ [Recovered/Resolved]

NARRATIVE: CASE EVENT DATE: 20220801
